FAERS Safety Report 6745078-5 (Version None)
Quarter: 2010Q2

REPORT INFORMATION
  Report Type: 
  Country: None (occurrence: None)
  Receive Date: 20100527
  Receipt Date: 20100525
  Transmission Date: 20101027
  Serious: Yes (Disabling)
  Sender: FDA-Public Use
  Company Number: GB-MERCK-0911GBR00058

PATIENT
  Age: 45 Year
  Sex: Male
  Weight: 78 kg

DRUGS (19)
  1. ISENTRESS [Suspect]
     Indication: HIV INFECTION
     Route: 048
  2. ACYCLOVIR [Concomitant]
     Route: 048
  3. AZITHROMYCIN [Concomitant]
     Route: 065
  4. CACIT VITAMINE D3 [Concomitant]
     Route: 048
  5. DAPSONE [Concomitant]
     Route: 048
  6. DARUNAVIR [Suspect]
     Indication: HIV INFECTION
     Route: 048
     Dates: start: 20080729
  7. DOCUSATE SODIUM [Concomitant]
     Route: 048
  8. DOMPERIDONE [Concomitant]
     Route: 048
  9. ETRAVIRINE [Suspect]
     Indication: HIV INFECTION
     Route: 048
  10. VALGANCICLOVIR HYDROCHLORIDE [Concomitant]
     Route: 065
  11. TESTOSTERONE [Concomitant]
     Route: 065
  12. RITONAVIR [Suspect]
     Indication: HIV INFECTION
     Route: 048
  13. FUROSEMIDE [Concomitant]
     Route: 048
  14. IBUPROFEN [Concomitant]
     Route: 048
  15. LEUCOVORIN CALCIUM [Concomitant]
     Route: 048
  16. MORPHINE SULFATE [Concomitant]
     Route: 048
  17. ORAMORPH SR [Concomitant]
     Route: 048
  18. PREGABALIN [Concomitant]
     Route: 048
  19. PYRIMETHAMINE [Concomitant]
     Route: 048

REACTIONS (3)
  - BLOOD CHOLESTEROL INCREASED [None]
  - OEDEMA [None]
  - WEIGHT INCREASED [None]
